FAERS Safety Report 15230179 (Version 2)
Quarter: 2019Q3

REPORT INFORMATION
  Report Type: Spontaneous
  Country: US (occurrence: US)
  Receive Date: 20180802
  Receipt Date: 20190805
  Transmission Date: 20191004
  Serious: Yes (Other)
  Sender: FDA-Public Use
  Company Number: US-ACCORD-066499

PATIENT
  Age: 55 Year
  Sex: Female

DRUGS (10)
  1. BENADRYL [Concomitant]
     Active Substance: DIPHENHYDRAMINE HYDROCHLORIDE
     Route: 042
  2. CYTOXAN [Suspect]
     Active Substance: CYCLOPHOSPHAMIDE
     Indication: BREAST CANCER
     Route: 042
  3. LISINOPRIL. [Concomitant]
     Active Substance: LISINOPRIL
     Dates: start: 2009
  4. DOCETAXEL ACCORD [Suspect]
     Active Substance: DOCETAXEL
     Indication: BREAST CANCER
     Dosage: DOSE: 120-150 MG
     Route: 042
     Dates: start: 20121010, end: 20121022
  5. ZOFRAN [Concomitant]
     Active Substance: ONDANSETRON HYDROCHLORIDE
     Route: 042
  6. PROVENTIL [Concomitant]
     Active Substance: ALBUTEROL
     Dates: start: 2010
  7. NEULASTA [Concomitant]
     Active Substance: PEGFILGRASTIM
     Route: 058
  8. PEPCID [Concomitant]
     Active Substance: FAMOTIDINE
     Route: 042
  9. DECADRON [Concomitant]
     Active Substance: DEXAMETHASONE
     Route: 042
  10. TRAMADOL. [Concomitant]
     Active Substance: TRAMADOL
     Dates: start: 2011

REACTIONS (1)
  - Alopecia [Not Recovered/Not Resolved]

NARRATIVE: CASE EVENT DATE: 201304
